FAERS Safety Report 12171421 (Version 1)
Quarter: 2016Q1

REPORT INFORMATION
  Report Type: Spontaneous
  Country: CN (occurrence: CN)
  Receive Date: 20160311
  Receipt Date: 20160311
  Transmission Date: 20160526
  Serious: Yes (Other)
  Sender: FDA-Public Use
  Company Number: CN-SUN PHARMACEUTICAL INDUSTRIES LTD-2016RR-113095

PATIENT

DRUGS (2)
  1. CAPECITABINE. [Suspect]
     Active Substance: CAPECITABINE
     Indication: SMALL INTESTINE CARCINOMA RECURRENT
     Dosage: 750 MG/M2, ON DAYS 1-14 EVERY 4 WK
     Route: 048
  2. OXALIPLATIN. [Suspect]
     Active Substance: OXALIPLATIN
     Indication: SMALL INTESTINE CARCINOMA RECURRENT
     Dosage: 130 MG/M2, ON DAY 1 EVERY 4 WK
     Route: 042

REACTIONS (2)
  - Skin reaction [Unknown]
  - Diarrhoea [Unknown]
